FAERS Safety Report 8507086-3 (Version None)
Quarter: 2012Q3

REPORT INFORMATION
  Report Type: 
  Country: None (occurrence: None)
  Receive Date: 20120712
  Receipt Date: 20120710
  Transmission Date: 20120928
  Serious: Yes (Hospitalization)
  Sender: FDA-Public Use
  Company Number: FR-GILEAD-2012-0057787

PATIENT
  Sex: Male

DRUGS (8)
  1. PLAVIX [Concomitant]
     Dosage: 75 MG, QD
  2. COVERSYL                           /00790702/ [Concomitant]
     Dosage: 4 MG, QD
  3. ZOLPIDEM TARTRATE [Concomitant]
     Dosage: 10 MG, QD
  4. VASTEN                             /00880402/ [Concomitant]
     Dosage: 40 MG, QD
  5. TRUVADA [Suspect]
     Indication: PRODUCT USED FOR UNKNOWN INDICATION
     Dosage: 1 DF, QD
     Dates: start: 20060412
  6. NEBIVOLOL HCL [Concomitant]
     Dosage: 2.5 MG, UNK
  7. SUSTIVA [Suspect]
     Indication: PRODUCT USED FOR UNKNOWN INDICATION
     Dosage: UNK
     Dates: start: 20021104
  8. SUBUTEX [Concomitant]

REACTIONS (1)
  - CHOLELITHIASIS [None]
